FAERS Safety Report 7152635-3 (Version None)
Quarter: 2010Q4

REPORT INFORMATION
  Report Type: 
  Country: None (occurrence: None)
  Receive Date: 20101208
  Receipt Date: 20101208
  Transmission Date: 20110411
  Serious: No
  Sender: FDA-Public Use
  Company Number: None

PATIENT
  Sex: Female

DRUGS (1)
  1. HYDROCHLOROTHIAZIDE [Suspect]
     Dosage: 25MG ONCE DAILY PO
     Route: 048
     Dates: start: 20100607, end: 20100722

REACTIONS (1)
  - PANCREATITIS ACUTE [None]
